FAERS Safety Report 9929389 (Version 2)
Quarter: 2014Q1

REPORT INFORMATION
  Report Type: Spontaneous
  Country: JP (occurrence: JP)
  Receive Date: 20140227
  Receipt Date: 20140325
  Transmission Date: 20141002
  Serious: Yes (Hospitalization)
  Sender: FDA-Public Use
  Company Number: JP-WATSON-2014-03482

PATIENT
  Age: 91 Year
  Sex: Male

DRUGS (12)
  1. RAPAFLO (WATSON LABORATORIES) [Suspect]
     Indication: DYSURIA
     Dosage: 4 MG, DAILY
     Route: 048
     Dates: start: 20131220
  2. RAPAFLO (WATSON LABORATORIES) [Suspect]
     Indication: URINARY RETENTION
     Dosage: 4 MG, BID
     Route: 048
     Dates: start: 20131213, end: 20131219
  3. DIGOXIN [Concomitant]
     Indication: ATRIAL FIBRILLATION
     Dosage: 0.125 MG, PRN
     Route: 048
     Dates: start: 20131202
  4. DIGOXIN [Concomitant]
     Indication: TACHYCARDIA
  5. DIGOXIN [Concomitant]
     Indication: CARDIAC FAILURE
  6. WARFARIN [Concomitant]
     Indication: ATRIAL FIBRILLATION
     Dosage: 1 MG, PRN
     Route: 048
     Dates: start: 20131202
  7. TIARYL [Concomitant]
     Indication: DELIRIUM
     Dosage: 50 MG, PRN
     Route: 048
     Dates: start: 20131212
  8. DIOVAN [Concomitant]
     Indication: HYPERTENSION
     Dosage: 80 MG, PRN
     Route: 048
  9. VOGLIBOSE OD [Concomitant]
     Indication: DIABETES MELLITUS
     Dosage: 0.6 MG, DAILY
     Route: 048
  10. GLIMEPIRIDE [Concomitant]
     Indication: DIABETES MELLITUS
     Dosage: 1 MG, DAILY
     Route: 048
  11. LANZOPRAZOL-OD [Concomitant]
     Indication: GASTROOESOPHAGEAL REFLUX DISEASE
     Dosage: 15 MG, DAILY
     Route: 048
  12. SENNOSIDE [Concomitant]
     Indication: CONSTIPATION
     Dosage: 24 MG, DAILY
     Route: 048

REACTIONS (1)
  - Rash [Recovering/Resolving]
